FAERS Safety Report 10155759 (Version 2)
Quarter: 2014Q2

REPORT INFORMATION
  Report Type: Report from Study
  Country: MX (occurrence: MX)
  Receive Date: 20140506
  Receipt Date: 20140513
  Transmission Date: 20141212
  Serious: Yes (Death)
  Sender: FDA-Public Use
  Company Number: PHHY2014MX054342

PATIENT
  Age: 32 Year
  Sex: Female

DRUGS (2)
  1. GLIVEC [Suspect]
     Indication: CHRONIC MYELOID LEUKAEMIA
     Dosage: 600 MG, UNK
     Dates: start: 20140306
  2. GLIVEC [Suspect]
     Indication: LEUKAEMIA

REACTIONS (2)
  - Neutropenia [Fatal]
  - Pyrexia [Fatal]
